FAERS Safety Report 5140839-0 (Version None)
Quarter: 2006Q4

REPORT INFORMATION
  Report Type: 
  Country: None (occurrence: None)
  Receive Date: 20061031
  Receipt Date: 20050606
  Transmission Date: 20070319
  Serious: Yes (Hospitalization)
  Sender: FDA-Public Use
  Company Number: US-MERCK-0506USA00932

PATIENT
  Age: 54 Year
  Sex: Male
  Weight: 144 kg

DRUGS (18)
  1. ZOCOR [Suspect]
     Indication: DYSLIPIDAEMIA
     Route: 048
     Dates: start: 20030101, end: 20040417
  2. ZOCOR [Suspect]
     Indication: BLOOD CHOLESTEROL INCREASED
     Route: 048
     Dates: start: 20030101, end: 20040417
  3. PRINIVIL [Concomitant]
     Route: 048
     Dates: end: 20040417
  4. BENICAR [Concomitant]
     Route: 048
     Dates: end: 20040417
  5. BENICAR [Concomitant]
     Route: 048
     Dates: start: 20040524
  6. LASIX [Concomitant]
     Route: 048
     Dates: end: 20040417
  7. LASIX [Concomitant]
     Route: 048
  8. METOLAZONE [Concomitant]
     Route: 048
     Dates: end: 20040417
  9. NORVASC [Concomitant]
     Route: 048
  10. POTASSIUM CHLORIDE [Concomitant]
     Route: 048
     Dates: end: 20040417
  11. NEURONTIN [Concomitant]
     Route: 048
  12. PRANDIN [Concomitant]
     Route: 048
     Dates: end: 20040417
  13. HUMULIN R [Concomitant]
     Route: 058
  14. HUMULIN R [Concomitant]
     Route: 058
  15. COENZYME Q10 [Concomitant]
     Route: 048
     Dates: end: 20040417
  16. ASPIRIN [Concomitant]
     Route: 048
  17. ASPIRIN [Concomitant]
     Route: 048
     Dates: end: 20040415
  18. BIAXIN [Suspect]
     Route: 065

REACTIONS (6)
  - ANAEMIA [None]
  - GASTROENTERITIS VIRAL [None]
  - OTITIS EXTERNA FUNGAL [None]
  - RENAL CYST [None]
  - RENAL FAILURE ACUTE [None]
  - RHABDOMYOLYSIS [None]
